FAERS Safety Report 22079070 (Version 1)
Quarter: 2023Q1

REPORT INFORMATION
  Report Type: Spontaneous
  Country: US (occurrence: None)
  Receive Date: 20230309
  Receipt Date: 20230309
  Transmission Date: 20230418
  Serious: Yes (Hospitalization)
  Sender: FDA-Public Use
  Company Number: None

PATIENT
  Age: 79 Year
  Sex: Male
  Weight: 103.95 kg

DRUGS (1)
  1. PEMBROLIZUMAB [Suspect]
     Active Substance: PEMBROLIZUMAB
     Indication: Lung neoplasm malignant
     Dosage: 200 MG ONE TIME INTRAVENOUS BOLOUS
     Route: 040
     Dates: start: 20220916

REACTIONS (2)
  - Pneumonitis [None]
  - Drug ineffective [None]

NARRATIVE: CASE EVENT DATE: 20221001
